FAERS Safety Report 16337413 (Version 1)
Quarter: 2019Q2

REPORT INFORMATION
  Report Type: Spontaneous
  Country: US (occurrence: US)
  Receive Date: 20190520
  Receipt Date: 20190520
  Transmission Date: 20190711
  Serious: No
  Sender: FDA-Public Use
  Company Number: None

PATIENT
  Age: 10 Year
  Sex: Female
  Weight: 63 kg

DRUGS (1)
  1. BENADRYL EXTRA STRENGTH ITCH STOPPING [Suspect]
     Active Substance: DIPHENHYDRAMINE HYDROCHLORIDE\ZINC ACETATE
     Indication: ARTHROPOD BITE
     Dosage: ?          QUANTITY:3.5 OUNCE(S);?
     Route: 061
     Dates: start: 20190519, end: 20190520

REACTIONS (5)
  - Application site pain [None]
  - Application site vesicles [None]
  - Urticaria [None]
  - Application site exfoliation [None]
  - Application site pruritus [None]

NARRATIVE: CASE EVENT DATE: 20190519
